FAERS Safety Report 8356288-8 (Version None)
Quarter: 2012Q2

REPORT INFORMATION
  Report Type: 
  Country: None (occurrence: None)
  Receive Date: 20120514
  Receipt Date: 20120509
  Transmission Date: 20120825
  Serious: Yes (Other)
  Sender: FDA-Public Use
  Company Number: US-PFIZER INC-2012094881

PATIENT
  Sex: Male

DRUGS (4)
  1. NEURONTIN [Suspect]
     Dosage: UNK
  2. NEURONTIN [Suspect]
     Dosage: 300 MG, THREE OR FOUR TIMES A DAY
  3. ALDACTONE [Suspect]
     Dosage: UNK
  4. GABAPENTIN [Suspect]
     Dosage: UNK

REACTIONS (4)
  - DIZZINESS [None]
  - BALANCE DISORDER [None]
  - FALL [None]
  - DRUG INEFFECTIVE [None]
